FAERS Safety Report 18873229 (Version 1)
Quarter: 2021Q1

REPORT INFORMATION
  Report Type: Spontaneous
  Country: DE (occurrence: DE)
  Receive Date: 20210210
  Receipt Date: 20210210
  Transmission Date: 20210420
  Serious: Yes (Hospitalization, Other)
  Sender: FDA-Public Use
  Company Number: DE-ACCORD-216788

PATIENT
  Age: 63 Year
  Sex: Female

DRUGS (3)
  1. DOCETAXEL. [Suspect]
     Active Substance: DOCETAXEL
     Indication: NON-SMALL CELL LUNG CANCER STAGE IV
     Dates: start: 202004
  2. RAMUCIRUMAB [Interacting]
     Active Substance: RAMUCIRUMAB
     Indication: NON-SMALL CELL LUNG CANCER STAGE IV
     Dates: start: 202004
  3. HYPERICUM PERFORATUM [Interacting]
     Active Substance: HYPERICUM PERFORATUM WHOLE
     Indication: ANALGESIC THERAPY
     Dosage: APPLIED IT TWICE DURING RADIOTHERAPY
     Route: 061

REACTIONS (3)
  - Folliculitis [Recovered/Resolved]
  - Staphylococcal infection [Recovered/Resolved]
  - Drug interaction [Unknown]
